FAERS Safety Report 18521185 (Version 1)
Quarter: 2020Q4

REPORT INFORMATION
  Report Type: Spontaneous
  Country: US (occurrence: US)
  Receive Date: 20201119
  Receipt Date: 20201119
  Transmission Date: 20210114
  Serious: No
  Sender: FDA-Public Use
  Company Number: US-PFIZER INC-2020454535

PATIENT
  Age: 73 Year
  Sex: Male
  Weight: 70.31 kg

DRUGS (2)
  1. TOVIAZ [Suspect]
     Active Substance: FESOTERODINE FUMARATE
     Indication: BLADDER DISORDER
     Dosage: 8 MG, DAILY (1 TABLET BY MOUTH DAILY, 8 MG)
     Route: 048
  2. TOVIAZ [Suspect]
     Active Substance: FESOTERODINE FUMARATE
     Indication: PROSTATIC DISORDER

REACTIONS (1)
  - Amnesia [Unknown]

NARRATIVE: CASE EVENT DATE: 2020
